FAERS Safety Report 12595848 (Version 3)
Quarter: 2017Q4

REPORT INFORMATION
  Report Type: Spontaneous
  Country: CN (occurrence: CN)
  Receive Date: 20160726
  Receipt Date: 20171030
  Transmission Date: 20180320
  Serious: Yes (Other)
  Sender: FDA-Public Use
  Company Number: CN-PFIZER INC-2016344156

PATIENT
  Age: 35 Year
  Sex: Female

DRUGS (3)
  1. DOXORUBICIN HCL [Suspect]
     Active Substance: DOXORUBICIN HYDROCHLORIDE
     Indication: DESMOID TUMOUR
     Dosage: 20 MG/M2, CYCLIC (EVERY 28 DAYS, RECEIVED 20 MG/M2 DAILY THROUGHOUT 4 DAYS PER CYCLE)
     Route: 041
     Dates: start: 20121011
  2. MELOXICAM. [Suspect]
     Active Substance: MELOXICAM
     Indication: DESMOID TUMOUR
     Dosage: 10 MG/M2, UNK
     Dates: start: 20121011
  3. DACARBAZINE. [Suspect]
     Active Substance: DACARBAZINE
     Indication: DESMOID TUMOUR
     Dosage: 150 MG/M2, CYCLIC (EVERY 28 DAYS, RECEIVED 150 MG/M2 DAILY THROUGHOUT 4 DAYS PER CYCLE)
     Route: 041
     Dates: start: 20121011

REACTIONS (1)
  - Intestinal perforation [Recovered/Resolved]
